FAERS Safety Report 5007640-X (Version None)
Quarter: 2006Q2

REPORT INFORMATION
  Report Type: 
  Country: None (occurrence: None)
  Receive Date: 20060405
  Receipt Date: 20051206
  Transmission Date: 20061013
  Serious: Yes (Hospitalization)
  Sender: FDA-Public Use
  Company Number: PHEH2005US10406

PATIENT
  Age: 42 Year
  Sex: Female
  Weight: 45.4 kg

DRUGS (3)
  1. VIVELLE-DOT [Suspect]
     Indication: OESTROGEN REPLACEMENT THERAPY
     Dosage: SEE IMAGE
     Route: 062
     Dates: start: 20050101, end: 20050901
  2. KLONOPIN [Concomitant]
  3. WELLBUTRIN XL [Concomitant]

REACTIONS (7)
  - BREAST MASS [None]
  - BREAST OPERATION [None]
  - BURNING SENSATION [None]
  - CHILLS [None]
  - HYPERHIDROSIS [None]
  - PAIN IN EXTREMITY [None]
  - SKIN REACTION [None]
